FAERS Safety Report 8956673 (Version 1)
Quarter: 2012Q4

REPORT INFORMATION
  Report Type: 
  Country: US (occurrence: US)
  Receive Date: 20121210
  Receipt Date: 20121210
  Transmission Date: 20130627
  Serious: Yes (Other)
  Sender: FDA-Public Use
  Company Number: PHEH2012US024141

PATIENT
  Sex: Male

DRUGS (10)
  1. TASIGNA [Suspect]
     Indication: CHRONIC MYELOID LEUKAEMIA
     Dosage: 150 mg, UNK
     Route: 048
  2. JANUVIA [Concomitant]
  3. ATENOLOL [Concomitant]
  4. GLIPIZIDE [Concomitant]
  5. KLOR-CON [Concomitant]
  6. FUROSEMIDE [Concomitant]
  7. PLAVIX [Concomitant]
  8. PROTONIX [Concomitant]
  9. LIPITOR [Concomitant]
  10. FOLIC ACID [Concomitant]

REACTIONS (1)
  - Myocardial infarction [Unknown]
